FAERS Safety Report 7733957-1 (Version None)
Quarter: 2011Q3

REPORT INFORMATION
  Report Type: 
  Country: None (occurrence: None)
  Receive Date: 20110906
  Receipt Date: 20110906
  Transmission Date: 20111222
  Serious: Yes (Hospitalization)
  Sender: FDA-Public Use
  Company Number: None

PATIENT
  Age: 53 Year
  Sex: Female
  Weight: 63.6 kg

DRUGS (1)
  1. DILANTIN [Suspect]
     Indication: CONVULSION
     Dosage: 150MG TWICE DAILY BY MOUTH
     Route: 048
     Dates: start: 20110714, end: 20110812

REACTIONS (9)
  - HYPERSOMNIA [None]
  - FATIGUE [None]
  - ABDOMINAL PAIN UPPER [None]
  - ANTICONVULSANT DRUG LEVEL INCREASED [None]
  - DYSGEUSIA [None]
  - ABASIA [None]
  - ABDOMINAL DISCOMFORT [None]
  - PRODUCT SUBSTITUTION ISSUE [None]
  - DRUG EFFECT DECREASED [None]
